FAERS Safety Report 4311224-6 (Version None)
Quarter: 2004Q1

REPORT INFORMATION
  Report Type: 
  Country: None (occurrence: None)
  Receive Date: 20040302
  Receipt Date: 20040205
  Transmission Date: 20041129
  Serious: No
  Sender: FDA-Public Use
  Company Number: 04P-056-0249928-00

PATIENT
  Age: 72 Year
  Sex: Female

DRUGS (1)
  1. VERCYTE [Suspect]
     Dosage: PER ORAL
     Route: 048

REACTIONS (1)
  - PULMONARY FIBROSIS [None]
